FAERS Safety Report 22597058 (Version 2)
Quarter: 2024Q3

REPORT INFORMATION
  Report Type: Spontaneous
  Country: JP (occurrence: JP)
  Receive Date: 20230613
  Receipt Date: 20240917
  Transmission Date: 20241017
  Serious: Yes (Death)
  Sender: JOHNSON AND JOHNSON
  Company Number: JP-BAYER-2023A072405

PATIENT
  Age: 86 Year
  Sex: Female

DRUGS (1)
  1. XARELTO [Suspect]
     Active Substance: RIVAROXABAN
     Indication: Atrial fibrillation
     Dosage: UNK
     Route: 048
     Dates: start: 20220827, end: 20220917

REACTIONS (5)
  - Stomatitis haemorrhagic [Fatal]
  - Mouth haemorrhage [Fatal]
  - Oral mucosa erosion [Fatal]
  - Tongue erosion [Fatal]
  - Scab [Fatal]

NARRATIVE: CASE EVENT DATE: 20220909
